FAERS Safety Report 4749325-0 (Version None)
Quarter: 2005Q3

REPORT INFORMATION
  Report Type: 
  Country: None (occurrence: None)
  Receive Date: 20050812
  Receipt Date: 20050608
  Transmission Date: 20060218
  Serious: Yes (Hospitalization)
  Sender: FDA-Public Use
  Company Number: 407333

PATIENT
  Age: 70 Year
  Sex: Female

DRUGS (2)
  1. PEGASYS [Suspect]
     Indication: HEPATITIS C
     Dosage: OTHER
     Route: 050
     Dates: start: 20050406, end: 20050427
  2. COPEGUS [Suspect]
     Indication: HEPATITIS C
     Dosage: ORAL
     Route: 048
     Dates: start: 20050406, end: 20050427

REACTIONS (5)
  - ABASIA [None]
  - ANAEMIA [None]
  - FATIGUE [None]
  - HAEMOGLOBIN DECREASED [None]
  - PNEUMONIA [None]
